FAERS Safety Report 6193455-6 (Version None)
Quarter: 2009Q2

REPORT INFORMATION
  Report Type: 
  Country: None (occurrence: None)
  Receive Date: 20090514
  Receipt Date: 20090514
  Transmission Date: 20091009
  Serious: Yes (Hospitalization)
  Sender: FDA-Public Use
  Company Number: None

PATIENT
  Sex: Female
  Weight: 63.5036 kg

DRUGS (1)
  1. CELEBREX [Suspect]
     Indication: ARTHRITIS
     Dosage: 1 DAILY PO
     Route: 048
     Dates: start: 20090219, end: 20090315

REACTIONS (3)
  - CHEST PAIN [None]
  - DYSPEPSIA [None]
  - HEART RATE INCREASED [None]
